FAERS Safety Report 25376438 (Version 1)
Quarter: 2025Q2

REPORT INFORMATION
  Report Type: Report from Study
  Country: US (occurrence: US)
  Receive Date: 20250529
  Receipt Date: 20250529
  Transmission Date: 20250717
  Serious: Yes (Other)
  Sender: ABBVIE
  Company Number: US-ABBVIE-6300580

PATIENT
  Age: 68 Year
  Sex: Female
  Weight: 74 kg

DRUGS (6)
  1. SKYRIZI [Suspect]
     Active Substance: RISANKIZUMAB-RZAA
     Indication: Crohn^s disease
     Route: 042
     Dates: start: 20250327, end: 20250327
  2. SKYRIZI [Suspect]
     Active Substance: RISANKIZUMAB-RZAA
     Indication: Crohn^s disease
     Route: 042
     Dates: start: 20250522
  3. SKYRIZI [Suspect]
     Active Substance: RISANKIZUMAB-RZAA
     Indication: Crohn^s disease
     Route: 042
     Dates: start: 2025, end: 2025
  4. Benzyl [Concomitant]
     Indication: Gastrointestinal pain
  5. ZOLOFT [Concomitant]
     Active Substance: SERTRALINE HYDROCHLORIDE
     Indication: Gastrointestinal pain
  6. LEVOTHYROXINE [Concomitant]
     Active Substance: LEVOTHYROXINE
     Indication: Thyroidectomy

REACTIONS (4)
  - Spider vein [Recovering/Resolving]
  - Hypertension [Recovered/Resolved]
  - Intra-abdominal fluid collection [Recovered/Resolved]
  - Varices oesophageal [Unknown]

NARRATIVE: CASE EVENT DATE: 20250101
